FAERS Safety Report 8515988-7 (Version None)
Quarter: 2012Q3

REPORT INFORMATION
  Report Type: 
  Country: None (occurrence: None)
  Receive Date: 20120717
  Receipt Date: 20120710
  Transmission Date: 20120928
  Serious: No
  Sender: FDA-Public Use
  Company Number: US-PFIZER INC-2012169014

PATIENT
  Sex: Female
  Weight: 89.342 kg

DRUGS (10)
  1. CLONAZEPAM [Concomitant]
  2. SPIRIVA [Concomitant]
     Indication: ASTHMA
     Dosage: UNK
  3. LASIX [Concomitant]
     Indication: OEDEMA PERIPHERAL
     Dosage: UNK
  4. LASIX [Concomitant]
     Indication: PAIN IN EXTREMITY
  5. CARISOPRODOL [Concomitant]
     Dosage: 350 MG, 4X/DAY
  6. CLONAZEPAM [Concomitant]
     Indication: SLEEP DISORDER
     Dosage: 1 MG, 1X/DAY
  7. CLONAZEPAM [Concomitant]
  8. ALBUTEROL [Concomitant]
     Indication: ASTHMA
     Dosage: UNK
  9. NEURONTIN [Suspect]
     Indication: FIBROMYALGIA
     Dosage: UNK, 4X/DAY
     Route: 048
  10. TYLENOL W/ CODEINE NO. 3 [Concomitant]
     Dosage: 300/30 MG, AS NEEDED

REACTIONS (1)
  - DRUG INEFFECTIVE [None]
